FAERS Safety Report 24631213 (Version 2)
Quarter: 2024Q4

REPORT INFORMATION
  Report Type: Spontaneous
  Country: DE (occurrence: DE)
  Receive Date: 20241118
  Receipt Date: 20241204
  Transmission Date: 20250115
  Serious: Yes (Other)
  Sender: BIOCON
  Company Number: DE-MIMS-BCONMC-8964

PATIENT

DRUGS (12)
  1. HULIO [Suspect]
     Active Substance: ADALIMUMAB-FKJP
     Indication: Psoriasis
     Dosage: 40 MILLIGRAM, BIWEEKLY
     Route: 065
     Dates: start: 2020
  2. HULIO [Suspect]
     Active Substance: ADALIMUMAB-FKJP
     Dosage: 40 MG, BIWEEKLY
     Route: 065
     Dates: start: 20220319
  3. PANTOPRAZOLE [Concomitant]
     Active Substance: PANTOPRAZOLE
     Indication: Product used for unknown indication
     Dosage: 40 MG, QD (GASTRIC JUICE RESISTANT TABLETS)
     Route: 065
  4. ADALIMUMAB [Concomitant]
     Active Substance: ADALIMUMAB
     Indication: Product used for unknown indication
     Dosage: 40 MG, BIWEEKLY (40 MG 1 UNIT AT 07:00, ONCE EVERY 14 DAYS) SOLUTION FOR INJECTION IN A PRE-FILLED S
     Route: 065
     Dates: start: 20240722
  5. DICLOFENAC SODIUM [Concomitant]
     Active Substance: DICLOFENAC SODIUM
     Indication: Product used for unknown indication
     Dosage: 75 MG, QD
     Route: 065
  6. NALOXONE HYDROCHLORIDE\TILIDINE HYDROCHLORIDE [Concomitant]
     Active Substance: NALOXONE HYDROCHLORIDE\TILIDINE HYDROCHLORIDE
     Indication: Product used for unknown indication
     Dosage: UNK, BID (100/8MG SLOW RELEASE TABLETS)
     Route: 065
  7. ACETYLCYSTEINE [Concomitant]
     Active Substance: ACETYLCYSTEINE
     Indication: Product used for unknown indication
     Dosage: 600 MG (1 TBL AT 07:00)
     Route: 065
  8. FLOXAL [Concomitant]
     Active Substance: OFLOXACIN
     Indication: Product used for unknown indication
     Dosage: 3 MG/ML (1 DROP AT 07:00 HOURS, 1 DROP  AT 11:00 HOURS, 1 DROP AT  18:00 HOURS, 1 DROP AT 21:00  HOU
     Route: 065
  9. DEXPANTHENOL [Concomitant]
     Active Substance: DEXPANTHENOL
     Indication: Product used for unknown indication
     Dosage: 50 MILLIGRAM PER GRAM, Q4D
     Route: 065
  10. IMIDIN [NAPHAZOLINE HYDROCHLORIDE] [Concomitant]
     Indication: Product used for unknown indication
     Dosage: UNK (MEDICATION AS NEEDED 1 PUFF  EACH MAXIMUM INTAKE EVERY 24 H: 3 PUFFS)
     Route: 065
  11. FRESENIUS PROPOVEN [Concomitant]
     Indication: Product used for unknown indication
     Dosage: 10 ML AT 07:00 HOURS,10 ML  AT 11:00 HOURS, 10 ML AT  18:00 HOURS
     Route: 065
  12. VITAMIN D NOS [Concomitant]
     Active Substance: CHOLECALCIFEROL\ERGOCALCIFEROL
     Indication: Osteoporosis
     Dosage: UNK UNK, 2000 IU/DL QD
     Route: 065
     Dates: start: 202408

REACTIONS (6)
  - Road traffic accident [Unknown]
  - Skull fracture [Unknown]
  - Clavicle fracture [Unknown]
  - Rib fracture [Unknown]
  - Impaired healing [Unknown]
  - Retrograde amnesia [Unknown]

NARRATIVE: CASE EVENT DATE: 20240701
